FAERS Safety Report 8510529-2 (Version None)
Quarter: 2012Q3

REPORT INFORMATION
  Report Type: 
  Country: None (occurrence: None)
  Receive Date: 20120716
  Receipt Date: 20120705
  Transmission Date: 20120928
  Serious: Yes (Life-Threatening, Hospitalization, Other)
  Sender: FDA-Public Use
  Company Number: IT-AMGEN-ITASP2012042449

PATIENT
  Age: 72 Year
  Sex: Male

DRUGS (1)
  1. ENBREL [Suspect]
     Indication: PSORIASIS
     Dosage: UNK

REACTIONS (3)
  - INFECTION [None]
  - POLYNEUROPATHY [None]
  - RESPIRATORY FAILURE [None]
